FAERS Safety Report 6824088-3 (Version None)
Quarter: 2010Q3

REPORT INFORMATION
  Report Type: 
  Country: None (occurrence: None)
  Receive Date: 20100708
  Receipt Date: 20061006
  Transmission Date: 20110219
  Serious: No
  Sender: FDA-Public Use
  Company Number: US-PFIZER INC-2006126312

PATIENT
  Sex: Male
  Weight: 74.84 kg

DRUGS (3)
  1. CHANTIX [Suspect]
     Dates: start: 20060101
  2. CLARITIN-D [Concomitant]
  3. ALL OTHER THERAPEUTIC PRODUCTS [Concomitant]

REACTIONS (2)
  - ABNORMAL DREAMS [None]
  - SLEEP DISORDER [None]
